FAERS Safety Report 9732523 (Version 1)
Quarter: 2013Q4

REPORT INFORMATION
  Report Type: Spontaneous
  Country: US (occurrence: US)
  Receive Date: 20131205
  Receipt Date: 20131205
  Transmission Date: 20140711
  Serious: Yes (Hospitalization)
  Sender: FDA-Public Use
  Company Number: US-BAYER-2013-147421

PATIENT
  Age: 20 Year
  Sex: Female

DRUGS (8)
  1. YAZ [Suspect]
  2. YASMIN [Suspect]
  3. LYRICA [Concomitant]
     Dosage: 50 MG, UNK
  4. ASACOL [Concomitant]
     Dosage: 1200 MG, UNK
  5. TETRACYCLINE [Concomitant]
     Dosage: 250 MG, UNK
  6. NEXIUM [Concomitant]
     Dosage: 40 MG, UNK
  7. LIBRAX [Concomitant]
     Dosage: 5/2.5 MG
  8. FLONASE [Concomitant]

REACTIONS (4)
  - Pulmonary embolism [None]
  - Vena cava thrombosis [None]
  - Pelvic venous thrombosis [None]
  - Deep vein thrombosis [None]
